FAERS Safety Report 7443657-3 (Version None)
Quarter: 2011Q2

REPORT INFORMATION
  Report Type: 
  Country: None (occurrence: None)
  Receive Date: 20110428
  Receipt Date: 20110422
  Transmission Date: 20111010
  Serious: Yes (Hospitalization)
  Sender: FDA-Public Use
  Company Number: US-AMGEN-USASP2011021412

PATIENT
  Sex: Female

DRUGS (1)
  1. XGEVA [Suspect]
     Indication: HYPERCALCAEMIA

REACTIONS (1)
  - PYREXIA [None]
